FAERS Safety Report 26131563 (Version 1)
Quarter: 2025Q4

REPORT INFORMATION
  Report Type: Spontaneous
  Country: US (occurrence: US)
  Receive Date: 20251208
  Receipt Date: 20251208
  Transmission Date: 20260117
  Serious: Yes (Life-Threatening, Other)
  Sender: FRESENIUS KABI
  Company Number: US-FreseniusKabi-FK202516557

PATIENT

DRUGS (2)
  1. AMIODARONE HYDROCHLORIDE [Suspect]
     Active Substance: AMIODARONE HYDROCHLORIDE
     Indication: Atrial fibrillation
     Dosage: AMIODARONE (450 MG/250 ML IN D5W) TO INFUSE AT 0.5 MG/MIN (16.7 ML/HOUR).?ASSOCIATED AMIODARONE WAS
  2. DEXTROSE [Suspect]
     Active Substance: DEXTROSE MONOHYDRATE
     Indication: Vehicle solution use
     Dosage: DEXTROSE 5% WATER (D5W) TO INFUSE AT 75 ML/HOUR AS A MAINTENANCE INTRAVENOUS (IV) FLUID. LATER, RATE

REACTIONS (4)
  - Product label confusion [Unknown]
  - Device programming error [Unknown]
  - Incorrect dosage administered [Unknown]
  - Hypotension [Unknown]
